FAERS Safety Report 21296857 (Version 1)
Quarter: 2022Q3

REPORT INFORMATION
  Report Type: Spontaneous
  Country: DE (occurrence: DE)
  Receive Date: 20220906
  Receipt Date: 20220906
  Transmission Date: 20221027
  Serious: Yes (Hospitalization, Other)
  Sender: FDA-Public Use
  Company Number: DE-AUROBINDO-AUR-APL-2022-034004

PATIENT
  Age: 55 Year
  Sex: Male

DRUGS (8)
  1. VORICONAZOLE [Suspect]
     Active Substance: VORICONAZOLE
     Indication: Fusarium infection
     Dosage: 4 MILLIGRAM/KILOGRAM, TWO TIMES A DAY
     Route: 065
  2. AMPHOTERICIN B [Suspect]
     Active Substance: AMPHOTERICIN B
     Indication: Fusarium infection
     Dosage: 10 MILLIGRAM/KILOGRAM, ONCE A DAY
     Route: 065
  3. AMPHOTERICIN B [Suspect]
     Active Substance: AMPHOTERICIN B
     Dosage: 3 MILLIGRAM/KILOGRAM
     Route: 065
  4. CYTARABINE [Concomitant]
     Active Substance: CYTARABINE
     Indication: Chemotherapy
     Dosage: UNK
     Route: 065
  5. CYTARABINE [Concomitant]
     Active Substance: CYTARABINE
     Indication: Acute myeloid leukaemia
  6. MITOXANTRONE [Concomitant]
     Active Substance: MITOXANTRONE HYDROCHLORIDE
     Indication: Chemotherapy
     Dosage: UNK
     Route: 065
  7. MITOXANTRONE [Concomitant]
     Active Substance: MITOXANTRONE HYDROCHLORIDE
     Indication: Acute myeloid leukaemia
  8. NIVOLUMAB [Concomitant]
     Active Substance: NIVOLUMAB
     Indication: Fusarium infection
     Dosage: UNK (2 WEEKS)
     Route: 065

REACTIONS (5)
  - Drug ineffective [Unknown]
  - Hepatic infection fungal [Recovering/Resolving]
  - Disease progression [Recovering/Resolving]
  - Splenic infection fungal [Recovering/Resolving]
  - Nephropathy toxic [Unknown]
